FAERS Safety Report 12526066 (Version 1)
Quarter: 2016Q3

REPORT INFORMATION
  Report Type: Spontaneous
  Country: US (occurrence: US)
  Receive Date: 20160705
  Receipt Date: 20160705
  Transmission Date: 20161109
  Serious: No
  Sender: FDA-Public Use
  Company Number: US-PFIZER INC-2016295402

PATIENT
  Age: 86 Year
  Sex: Female

DRUGS (1)
  1. IBRANCE [Suspect]
     Active Substance: PALBOCICLIB
     Indication: BREAST CANCER
     Dosage: 75 MG, CYCLIC (1 TAB DAILY FOR 21 DAYS THEN 7 DAYS OFF)

REACTIONS (4)
  - Fatigue [Unknown]
  - Weight decreased [Unknown]
  - Dizziness [Unknown]
  - Limb discomfort [Unknown]
